FAERS Safety Report 5951437-0 (Version None)
Quarter: 2008Q4

REPORT INFORMATION
  Report Type: 
  Country: None (occurrence: None)
  Receive Date: 20081112
  Receipt Date: 20081112
  Transmission Date: 20090506
  Serious: No
  Sender: FDA-Public Use
  Company Number: None

PATIENT
  Sex: Male
  Weight: 90.23 kg

DRUGS (2)
  1. CAMPTOSAR [Suspect]
     Dosage: 244 MG
  2. ELOXATIN [Suspect]
     Dosage: 132 MG

REACTIONS (2)
  - NASAL CONGESTION [None]
  - RASH ERYTHEMATOUS [None]
